FAERS Safety Report 7249923-9 (Version None)
Quarter: 2011Q1

REPORT INFORMATION
  Report Type: 
  Country: None (occurrence: None)
  Receive Date: 20110128
  Receipt Date: 20100910
  Transmission Date: 20110831
  Serious: No
  Sender: FDA-Public Use
  Company Number: A0881345A

PATIENT
  Age: 57 Year
  Sex: Male
  Weight: 70.5 kg

DRUGS (4)
  1. WELLBUTRIN [Suspect]
     Route: 065
  2. VICODIN [Concomitant]
  3. CHANTIX [Suspect]
     Indication: SMOKING CESSATION THERAPY
     Route: 065
     Dates: start: 20100811
  4. ZOLOFT [Suspect]
     Route: 065

REACTIONS (5)
  - HEADACHE [None]
  - AGITATION [None]
  - BLOOD BLISTER [None]
  - ACNE [None]
  - URINARY INCONTINENCE [None]
